FAERS Safety Report 5328412-2 (Version None)
Quarter: 2007Q2

REPORT INFORMATION
  Report Type: 
  Country: None (occurrence: None)
  Receive Date: 20070514
  Receipt Date: 20070426
  Transmission Date: 20071010
  Serious: Yes (Hospitalization)
  Sender: FDA-Public Use
  Company Number: DSA_29840_2007

PATIENT
  Sex: Female

DRUGS (3)
  1. TAVOR /00273201/ (TAVOR) 0.5 MG [Suspect]
     Dosage: 25 MG 1X ORAL
     Route: 048
     Dates: start: 20070426, end: 20070426
  2. PROMETHAZINE [Suspect]
     Dosage: 45 ML 1X ORAL
     Route: 048
     Dates: start: 20070426, end: 20070426
  3. ZOPICLONE (ZOPICLONE) 1 DF [Suspect]
     Dosage: 750 MG 1X ORAL
     Route: 048
     Dates: start: 20070426, end: 20070426

REACTIONS (3)
  - ACCIDENTAL OVERDOSE [None]
  - COMA [None]
  - MEDICATION ERROR [None]
